FAERS Safety Report 15978228 (Version 1)
Quarter: 2019Q1

REPORT INFORMATION
  Report Type: Spontaneous
  Country: ES (occurrence: ES)
  Receive Date: 20190219
  Receipt Date: 20190219
  Transmission Date: 20190418
  Serious: Yes (Hospitalization, Other)
  Sender: FDA-Public Use
  Company Number: ES-AMGEN-ESPSP2019023385

PATIENT
  Age: 94 Year
  Sex: Female

DRUGS (8)
  1. LORAZEPAM NORMON [Concomitant]
     Dosage: 1 MG, UNK
     Route: 048
  2. PROLIA [Suspect]
     Active Substance: DENOSUMAB
     Indication: OSTEOPOROSIS
     Dosage: 60 MG, IN TOTAL
     Route: 058
     Dates: start: 20190107, end: 20190107
  3. BISOPROLOL NORMON [Concomitant]
     Indication: HYPERTENSION
     Dosage: 2.5 MG, UNK
     Route: 048
  4. FERROUS SULFATE. [Concomitant]
     Active Substance: FERROUS SULFATE
     Indication: ANAEMIA
     Dosage: 105 MG, UNK
     Route: 048
  5. ACIDO ACETILSALICILICO PENSA [Concomitant]
     Indication: CARDIOVASCULAR EVENT PROPHYLAXIS
     Dosage: 100 MG, UNK
  6. HIDROFEROL [Concomitant]
     Active Substance: CALCIFEDIOL
     Dosage: 0.1 MG/ML (1 BOTTLE OF 20 ML), UNK
     Route: 048
  7. PARACETAMOL KERN [Concomitant]
     Indication: PAIN
     Dosage: 1 G, UNK
     Route: 048
  8. ESOMEPRAZOL NORMON [Concomitant]
     Active Substance: ESOMEPRAZOLE SODIUM
     Indication: PROPHYLAXIS AGAINST GASTROINTESTINAL ULCER
     Dosage: 20 MG, UNK
     Route: 048

REACTIONS (4)
  - Metabolic encephalopathy [Recovering/Resolving]
  - Muscle spasms [Recovering/Resolving]
  - Hypocalcaemia [Recovering/Resolving]
  - Hypomagnesaemia [Recovering/Resolving]

NARRATIVE: CASE EVENT DATE: 20190117
